FAERS Safety Report 10421621 (Version 2)
Quarter: 2014Q4

REPORT INFORMATION
  Report Type: Report from Study
  Country: US (occurrence: US)
  Receive Date: 20140901
  Receipt Date: 20141117
  Transmission Date: 20150528
  Serious: Yes (Hospitalization)
  Sender: FDA-Public Use
  Company Number: US-BIOGENIDEC-2014BI086958

PATIENT
  Age: 67 Year
  Sex: Female

DRUGS (21)
  1. ZOLOFT [Concomitant]
     Active Substance: SERTRALINE HYDROCHLORIDE
  2. LOSARTAN POTASSIUM. [Concomitant]
     Active Substance: LOSARTAN POTASSIUM
  3. NAPROXEN DR [Concomitant]
  4. AVONEX [Suspect]
     Active Substance: INTERFERON BETA-1A
     Indication: MULTIPLE SCLEROSIS
     Route: 030
     Dates: start: 19991127
  5. METHENAMINE MANDELATE. [Concomitant]
     Active Substance: METHENAMINE MANDELATE
  6. GABAPENTIN. [Concomitant]
     Active Substance: GABAPENTIN
  7. BENADRYL ALLERGY [Concomitant]
     Active Substance: DIPHENHYDRAMINE HYDROCHLORIDE
  8. AVONEX [Suspect]
     Active Substance: INTERFERON BETA-1A
     Indication: MULTIPLE SCLEROSIS
     Route: 030
     Dates: start: 20130121
  9. VITAMIN C [Concomitant]
     Active Substance: ASCORBIC ACID
  10. VITAMIN B12 [Concomitant]
     Active Substance: CYANOCOBALAMIN
  11. GLUCOSAMINE [Concomitant]
     Active Substance: GLUCOSAMINE
  12. LORATADINE. [Concomitant]
     Active Substance: LORATADINE
  13. POTASSIUM CHLORIDE CR [Concomitant]
     Active Substance: POTASSIUM CHLORIDE
  14. TYLENOL EXTRA STRENGTH [Concomitant]
     Active Substance: ACETAMINOPHEN
     Indication: ARTHRALGIA
  15. VITAMIN D3 [Concomitant]
     Active Substance: CHOLECALCIFEROL
  16. ADDERALL [Concomitant]
     Active Substance: AMPHETAMINE ASPARTATE\AMPHETAMINE SULFATE\DEXTROAMPHETAMINE SACCHARATE\DEXTROAMPHETAMINE SULFATE
  17. NEURONTIN [Concomitant]
     Active Substance: GABAPENTIN
  18. XANAX [Concomitant]
     Active Substance: ALPRAZOLAM
  19. AMPHETAMINE-DEXTROAMPHETAMINE [Concomitant]
     Active Substance: AMPHETAMINE SULFATE\DEXTROAMPHETAMINE
  20. SERTRALINE HCL [Concomitant]
     Active Substance: SERTRALINE HYDROCHLORIDE
  21. HYDROCHLOROTHIAZIDE. [Concomitant]
     Active Substance: HYDROCHLOROTHIAZIDE

REACTIONS (2)
  - Drug dose omission [Unknown]
  - Spinal fusion surgery [Recovered/Resolved]

NARRATIVE: CASE EVENT DATE: 20140723
